FAERS Safety Report 24244491 (Version 1)
Quarter: 2024Q3

REPORT INFORMATION
  Report Type: Spontaneous
  Country: ES (occurrence: ES)
  Receive Date: 20240823
  Receipt Date: 20240823
  Transmission Date: 20241017
  Serious: Yes (Other)
  Sender: TAKEDA
  Company Number: ES-EMA-DD-20180203-devashreeevhpdd-164103

PATIENT
  Age: 60 Year
  Sex: Male

DRUGS (30)
  1. MESALAMINE [Suspect]
     Active Substance: MESALAMINE
     Indication: Inflammatory bowel disease
     Route: 065
  2. MESALAMINE [Suspect]
     Active Substance: MESALAMINE
     Indication: Gastrointestinal fistula
  3. BUDESONIDE [Suspect]
     Active Substance: BUDESONIDE
     Indication: Inflammatory bowel disease
     Dosage: UNK
     Route: 065
  4. BUDESONIDE [Suspect]
     Active Substance: BUDESONIDE
     Indication: Gastrointestinal fistula
  5. BUDESONIDE [Suspect]
     Active Substance: BUDESONIDE
     Indication: Immunodeficiency common variable
  6. METHYLPREDNISOLONE SODIUM SUCCINATE [Suspect]
     Active Substance: METHYLPREDNISOLONE SODIUM SUCCINATE
     Indication: Inflammatory bowel disease
     Route: 065
  7. METHYLPREDNISOLONE SODIUM SUCCINATE [Suspect]
     Active Substance: METHYLPREDNISOLONE SODIUM SUCCINATE
     Indication: Gastrointestinal fistula
     Dosage: UNK
     Route: 065
  8. METHYLPREDNISOLONE SODIUM SUCCINATE [Suspect]
     Active Substance: METHYLPREDNISOLONE SODIUM SUCCINATE
     Indication: Immunodeficiency common variable
  9. INFLIXIMAB [Suspect]
     Active Substance: INFLIXIMAB
     Indication: Immunodeficiency common variable
     Dosage: UNK
     Route: 042
  10. INFLIXIMAB [Suspect]
     Active Substance: INFLIXIMAB
     Indication: Inflammatory bowel disease
  11. INFLIXIMAB [Suspect]
     Active Substance: INFLIXIMAB
     Indication: Gastrointestinal fistula
  12. ADALIMUMAB [Suspect]
     Active Substance: ADALIMUMAB
     Indication: Inflammatory bowel disease
     Dosage: 40 MILLIGRAM, 1/WEEK
     Route: 065
     Dates: start: 201410
  13. ADALIMUMAB [Suspect]
     Active Substance: ADALIMUMAB
     Indication: Immunodeficiency common variable
  14. ADALIMUMAB [Suspect]
     Active Substance: ADALIMUMAB
     Indication: Gastrointestinal fistula
  15. AZATHIOPRINE [Suspect]
     Active Substance: AZATHIOPRINE
     Indication: Inflammatory bowel disease
     Route: 065
  16. AZATHIOPRINE [Suspect]
     Active Substance: AZATHIOPRINE
     Route: 065
  17. AZATHIOPRINE SODIUM [Suspect]
     Active Substance: AZATHIOPRINE SODIUM
     Indication: Inflammatory bowel disease
     Dosage: UNKNOWN DOSE
     Route: 065
  18. AZATHIOPRINE SODIUM [Suspect]
     Active Substance: AZATHIOPRINE SODIUM
     Indication: Gastrointestinal fistula
  19. AZATHIOPRINE SODIUM [Suspect]
     Active Substance: AZATHIOPRINE SODIUM
     Indication: Immunodeficiency common variable
  20. FILGRASTIM [Suspect]
     Active Substance: FILGRASTIM
     Indication: Inflammatory bowel disease
     Route: 065
  21. NEUPOGEN [Suspect]
     Active Substance: FILGRASTIM
     Indication: Immunodeficiency common variable
     Route: 065
  22. NEUPOGEN [Suspect]
     Active Substance: FILGRASTIM
     Indication: Inflammatory bowel disease
  23. NEUPOGEN [Suspect]
     Active Substance: FILGRASTIM
     Indication: Gastrointestinal fistula
  24. GRANULOCYTE COLONY-STIMULATING FACTOR NOS [Suspect]
     Active Substance: GRANULOCYTE COLONY-STIMULATING FACTOR NOS
     Indication: Inflammatory bowel disease
     Dosage: UNK
     Route: 065
  25. USTEKINUMAB [Concomitant]
     Active Substance: USTEKINUMAB
     Indication: Inflammatory bowel disease
     Dosage: 90 MILLIGRAM
     Route: 058
     Dates: start: 2014
  26. USTEKINUMAB [Concomitant]
     Active Substance: USTEKINUMAB
     Indication: Immunodeficiency common variable
  27. USTEKINUMAB [Concomitant]
     Active Substance: USTEKINUMAB
     Indication: Gastrointestinal fistula
  28. USTEKINUMAB [Concomitant]
     Active Substance: USTEKINUMAB
     Indication: Perforation
  29. USTEKINUMAB [Concomitant]
     Active Substance: USTEKINUMAB
     Indication: Small intestinal obstruction
  30. USTEKINUMAB [Concomitant]
     Active Substance: USTEKINUMAB
     Indication: Fistula

REACTIONS (10)
  - Periumbilical abscess [Recovered/Resolved]
  - Off label use [Unknown]
  - Campylobacter gastroenteritis [Recovered/Resolved]
  - Gastroenteritis clostridial [Recovered/Resolved]
  - Intestinal perforation [Recovered/Resolved]
  - Intestinal fistula [Recovered/Resolved]
  - Cytomegalovirus enteritis [Recovered/Resolved]
  - Small intestinal obstruction [Recovered/Resolved]
  - Drug ineffective [Unknown]
  - Drug ineffective for unapproved indication [Unknown]

NARRATIVE: CASE EVENT DATE: 20141001
